FAERS Safety Report 5916144-9 (Version None)
Quarter: 2008Q4

REPORT INFORMATION
  Report Type: 
  Country: None (occurrence: None)
  Receive Date: 20081009
  Receipt Date: 20081001
  Transmission Date: 20090506
  Serious: Yes (Hospitalization)
  Sender: FDA-Public Use
  Company Number: 2008BI026102

PATIENT
  Age: 52 Year
  Sex: Female

DRUGS (3)
  1. TYSABRI [Suspect]
     Indication: MULTIPLE SCLEROSIS
     Dosage: 300 MG ;QM; IV
     Route: 042
     Dates: start: 20071115
  2. . [Concomitant]
  3. . [Concomitant]

REACTIONS (2)
  - IMMUNE SYSTEM DISORDER [None]
  - VIRAL INFECTION [None]
